FAERS Safety Report 23157902 (Version 7)
Quarter: 2024Q1

REPORT INFORMATION
  Report Type: Spontaneous
  Country: JP (occurrence: JP)
  Receive Date: 20231108
  Receipt Date: 20240306
  Transmission Date: 20240409
  Serious: Yes (Death, Hospitalization, Other)
  Sender: FDA-Public Use
  Company Number: JP-BRISTOL-MYERS SQUIBB COMPANY-2023-158424

PATIENT
  Age: 59 Year
  Sex: Female

DRUGS (2)
  1. YERVOY [Suspect]
     Active Substance: IPILIMUMAB
     Indication: Oesophageal carcinoma
     Route: 041
     Dates: start: 20230726
  2. OPDIVO [Suspect]
     Active Substance: NIVOLUMAB
     Indication: Oesophageal carcinoma
     Route: 041
     Dates: start: 20230726

REACTIONS (13)
  - Immune-mediated enterocolitis [Fatal]
  - Malignant neoplasm progression [Fatal]
  - Gastrooesophageal reflux disease [Unknown]
  - Pneumonia aspiration [Recovering/Resolving]
  - Hypoxia [Unknown]
  - Vomiting [Unknown]
  - Tracheal fistula [Unknown]
  - Condition aggravated [Unknown]
  - Hypothyroidism [Unknown]
  - SARS-CoV-2 test positive [Unknown]
  - Pneumonia [Unknown]
  - Gastrointestinal oedema [Unknown]
  - Haematemesis [Unknown]

NARRATIVE: CASE EVENT DATE: 20230810
